FAERS Safety Report 12443389 (Version 2)
Quarter: 2016Q2

REPORT INFORMATION
  Report Type: Spontaneous
  Country: IT (occurrence: IT)
  Receive Date: 20160607
  Receipt Date: 20160617
  Transmission Date: 20160815
  Serious: Yes (Hospitalization)
  Sender: FDA-Public Use
  Company Number: IT-PFIZER INC-2016287374

PATIENT
  Age: 53 Year
  Sex: Female

DRUGS (4)
  1. ESOPRAL /01479302/ [Concomitant]
     Indication: ULCER
     Route: 048
  2. SERTRALINE HYDROCHLORIDE. [Concomitant]
     Active Substance: SERTRALINE HYDROCHLORIDE
     Indication: DEPRESSION
     Dosage: 1 DF, UNK
     Route: 048
  3. TRITTICO [Suspect]
     Active Substance: TRAZODONE HYDROCHLORIDE
     Dosage: 3 DF, TOTAL
     Route: 048
     Dates: start: 20160409, end: 20160409
  4. LORAZEPAM. [Suspect]
     Active Substance: LORAZEPAM
     Dosage: 3 DF, TOTAL
     Route: 048
     Dates: start: 20160409, end: 20160409

REACTIONS (2)
  - Intentional self-injury [Recovered/Resolved]
  - Drug abuse [Recovered/Resolved]

NARRATIVE: CASE EVENT DATE: 20160409
